FAERS Safety Report 7516187-8 (Version None)
Quarter: 2011Q2

REPORT INFORMATION
  Report Type: 
  Country: None (occurrence: None)
  Receive Date: 20110601
  Receipt Date: 20110526
  Transmission Date: 20111010
  Serious: Yes (Other)
  Sender: FDA-Public Use
  Company Number: TH-ROCHE-779823

PATIENT
  Sex: Female

DRUGS (3)
  1. LAPATINIB [Suspect]
     Indication: BREAST CANCER
     Dosage: START: 09 MARCH 2010. FREQUENCY : DAILY
     Route: 048
     Dates: end: 20100803
  2. TRASTUZUMAB [Suspect]
     Indication: BREAST CANCER
     Dosage: LOADING DOSE
     Route: 042
     Dates: start: 20091102
  3. TRASTUZUMAB [Suspect]
     Dosage: MAITENANCE DOSE
     Route: 042
     Dates: end: 20100121

REACTIONS (1)
  - ALANINE AMINOTRANSFERASE INCREASED [None]
